FAERS Safety Report 6035442-4 (Version None)
Quarter: 2009Q1

REPORT INFORMATION
  Report Type: 
  Country: None (occurrence: None)
  Receive Date: 20090113
  Receipt Date: 20090107
  Transmission Date: 20090719
  Serious: Yes (Other)
  Sender: FDA-Public Use
  Company Number: JP-BRISTOL-MYERS SQUIBB COMPANY-14464804

PATIENT
  Age: 17 Year
  Sex: Male

DRUGS (1)
  1. KENACORT [Suspect]
     Indication: CARPAL TUNNEL SYNDROME
     Route: 041

REACTIONS (2)
  - IRON DEFICIENCY ANAEMIA [None]
  - PARALYSIS [None]
